FAERS Safety Report 23737039 (Version 2)
Quarter: 2024Q2

REPORT INFORMATION
  Report Type: Spontaneous
  Country: US (occurrence: US)
  Receive Date: 20240412
  Receipt Date: 20240605
  Transmission Date: 20240715
  Serious: No
  Sender: FDA-Public Use
  Company Number: US-Millicent Holdings Ltd.-MILL20240832

PATIENT
  Age: 56 Year
  Sex: Female

DRUGS (2)
  1. INTRAROSA [Suspect]
     Active Substance: PRASTERONE
     Indication: Atrophic vulvovaginitis
     Dosage: 6.5 MG, UNKNOWN
     Route: 067
  2. INTRAROSA [Suspect]
     Active Substance: PRASTERONE
     Dosage: 6.5 MG, UNKNOWN
     Route: 067
     Dates: start: 202303

REACTIONS (6)
  - Atrophic vulvovaginitis [Not Recovered/Not Resolved]
  - Condition aggravated [Not Recovered/Not Resolved]
  - Application site discharge [Recovered/Resolved]
  - Poor quality product administered [Not Recovered/Not Resolved]
  - Off label use [Unknown]
  - Product physical issue [Not Recovered/Not Resolved]

NARRATIVE: CASE EVENT DATE: 20230301
